FAERS Safety Report 12306896 (Version 2)
Quarter: 2016Q2

REPORT INFORMATION
  Report Type: Spontaneous
  Country: ES (occurrence: ES)
  Receive Date: 20160426
  Receipt Date: 20160429
  Transmission Date: 20160815
  Serious: Yes (Other)
  Sender: FDA-Public Use
  Company Number: ES-NORTHSTAR HEALTHCARE HOLDINGS-ES-2016NSR001392

PATIENT

DRUGS (17)
  1. PARACETAMOL [Concomitant]
     Active Substance: ACETAMINOPHEN
     Indication: PRODUCT USED FOR UNKNOWN INDICATION
     Dosage: 1 G, TID
  2. SIMVASTATIN. [Concomitant]
     Active Substance: SIMVASTATIN
     Indication: PRODUCT USED FOR UNKNOWN INDICATION
     Dosage: 20 MG, QD
  3. DULOXETINE. [Suspect]
     Active Substance: DULOXETINE
     Indication: ANTIDEPRESSANT THERAPY
     Dosage: UNK
  4. TRAMADOL HYDROCHLORIDE. [Suspect]
     Active Substance: TRAMADOL HYDROCHLORIDE
     Indication: ANTIDEPRESSANT THERAPY
     Dosage: 75 MG, BID
  5. DULOXETINE. [Suspect]
     Active Substance: DULOXETINE
     Dosage: 30 MG, QAM
  6. TRAMADOL HYDROCHLORIDE. [Suspect]
     Active Substance: TRAMADOL HYDROCHLORIDE
     Dosage: 25 MG, Q8H
  7. FENTANYL. [Suspect]
     Active Substance: FENTANYL
     Indication: PAIN MANAGEMENT
     Dosage: 50 MG/ 10 CM^2, EVERY 72 HR
     Route: 062
  8. MIRTAZAPINE. [Suspect]
     Active Substance: MIRTAZAPINE
     Indication: INSOMNIA
  9. BISOPROLOL [Concomitant]
     Active Substance: BISOPROLOL
     Indication: PRODUCT USED FOR UNKNOWN INDICATION
     Dosage: 5 MG, QD
  10. MIRTAZAPINE. [Suspect]
     Active Substance: MIRTAZAPINE
     Indication: DEPRESSION
     Dosage: 7.5 MG, QPM
  11. ACENOCOUMAROL [Concomitant]
     Active Substance: ACENOCOUMAROL
     Indication: PRODUCT USED FOR UNKNOWN INDICATION
     Dosage: UNK
  12. FUROSEMIDE. [Concomitant]
     Active Substance: FUROSEMIDE
     Indication: PRODUCT USED FOR UNKNOWN INDICATION
     Dosage: 80 MG, QD
  13. ENALAPRIL [Concomitant]
     Active Substance: ENALAPRIL
     Indication: PRODUCT USED FOR UNKNOWN INDICATION
     Dosage: 5 MG, QD
  14. FENTANYL. [Suspect]
     Active Substance: FENTANYL
     Dosage: 25 MG/ 10 CM^2, EVERY 72 HR
     Route: 062
  15. SPIRONOLACTONE. [Concomitant]
     Active Substance: SPIRONOLACTONE
     Indication: PRODUCT USED FOR UNKNOWN INDICATION
     Dosage: 25 MG, QD
  16. PREGABALIN. [Concomitant]
     Active Substance: PREGABALIN
     Indication: PRODUCT USED FOR UNKNOWN INDICATION
     Dosage: 75 MG, QD
  17. LORAZEPAM. [Concomitant]
     Active Substance: LORAZEPAM
     Indication: PRODUCT USED FOR UNKNOWN INDICATION
     Dosage: 0.5 MG, QD

REACTIONS (11)
  - Drug interaction [Unknown]
  - Motor dysfunction [Recovering/Resolving]
  - Myoclonus [Recovering/Resolving]
  - Use of accessory respiratory muscles [Recovering/Resolving]
  - Renal impairment [Unknown]
  - Oedema [Recovering/Resolving]
  - Tachypnoea [Unknown]
  - Crepitations [Recovering/Resolving]
  - Neurotoxicity [Unknown]
  - Cardiac failure [Unknown]
  - Depression [Unknown]
